FAERS Safety Report 17157540 (Version 1)
Quarter: 2019Q4

REPORT INFORMATION
  Report Type: Spontaneous
  Country: US (occurrence: US)
  Receive Date: 20191213
  Receipt Date: 20191213
  Transmission Date: 20200122
  Serious: Yes (Hospitalization, Other)
  Sender: FDA-Public Use
  Company Number: None

PATIENT
  Age: 23 Year
  Sex: Male
  Weight: 122.85 kg

DRUGS (4)
  1. CITALOPRAM [Suspect]
     Active Substance: CITALOPRAM HYDROBROMIDE
     Indication: DEPRESSION
     Route: 048
     Dates: start: 20191203, end: 20191212
  2. IODINE CONTRAST FOR CARDIAC CT [Concomitant]
     Dates: start: 20191211, end: 20191211
  3. BETA BLOCKER (PT WILL FIND OUT) [Concomitant]
     Dates: start: 20191211, end: 20191211
  4. CITALOPRAM [Suspect]
     Active Substance: CITALOPRAM HYDROBROMIDE
     Indication: ANXIETY
     Route: 048
     Dates: start: 20191203, end: 20191212

REACTIONS (11)
  - Inappropriate affect [None]
  - Feeling hot [None]
  - Fatigue [None]
  - Periorbital swelling [None]
  - Headache [None]
  - Hyperhidrosis [None]
  - Chills [None]
  - Pain in extremity [None]
  - Hallucination, visual [None]
  - Insomnia [None]
  - Dissociation [None]

NARRATIVE: CASE EVENT DATE: 20191212
